FAERS Safety Report 21183686 (Version 2)
Quarter: 2022Q3

REPORT INFORMATION
  Report Type: Report from Study
  Country: US (occurrence: US)
  Receive Date: 20220808
  Receipt Date: 20220815
  Transmission Date: 20221026
  Serious: Yes (Hospitalization, Other)
  Sender: FDA-Public Use
  Company Number: US-GILEAD-2022-0592589

PATIENT
  Sex: Female

DRUGS (16)
  1. AZTREONAM LYSINE [Suspect]
     Active Substance: AZTREONAM LYSINE
     Indication: Cystic fibrosis lung
     Dosage: 75 MG, TID, 28 DAYS ON AND 28 DAYS OFF
     Route: 055
  2. NEXPLANON [Concomitant]
     Active Substance: ETONOGESTREL
  3. PULMOZYME [Concomitant]
     Active Substance: DORNASE ALFA
  4. TYMLOS [Concomitant]
     Active Substance: ABALOPARATIDE
  5. SYMBICORT [Concomitant]
     Active Substance: BUDESONIDE\FORMOTEROL FUMARATE DIHYDRATE
  6. ALBUTEROL SULFATE [Concomitant]
     Active Substance: ALBUTEROL SULFATE
  7. SODIUM CHLORIDE [Concomitant]
     Active Substance: SODIUM CHLORIDE
  8. VITAMIN D NOS [Concomitant]
     Active Substance: VITAMIN D NOS
  9. VITAMINS NOS [Concomitant]
     Active Substance: VITAMINS
  10. SINGULAIR [Concomitant]
     Active Substance: MONTELUKAST SODIUM
  11. FLUTICASONE PROPIONATE [Concomitant]
     Active Substance: FLUTICASONE PROPIONATE
  12. ATROVENT [Concomitant]
     Active Substance: IPRATROPIUM BROMIDE
  13. AZITHROMYCIN [Concomitant]
     Active Substance: AZITHROMYCIN
  14. LEVOFLOXACIN [Concomitant]
     Active Substance: LEVOFLOXACIN
  15. FLOVENT [Concomitant]
     Active Substance: FLUTICASONE PROPIONATE
  16. SYMDEKO [Concomitant]
     Active Substance: IVACAFTOR\TEZACAFTOR

REACTIONS (1)
  - Cystic fibrosis [Unknown]
